FAERS Safety Report 6535216-1 (Version None)
Quarter: 2010Q1

REPORT INFORMATION
  Report Type: 
  Country: None (occurrence: None)
  Receive Date: 20100111
  Receipt Date: 20100111
  Transmission Date: 20100710
  Serious: No
  Sender: FDA-Public Use
  Company Number: None

PATIENT
  Age: 39 Year
  Sex: Male
  Weight: 103.4201 kg

DRUGS (1)
  1. CLONIDINE [Suspect]
     Dosage: 0.2MG LIFE

REACTIONS (2)
  - PRODUCT ADHESION ISSUE [None]
  - PRODUCT SUBSTITUTION ISSUE [None]
